FAERS Safety Report 13792388 (Version 1)
Quarter: 2017Q3

REPORT INFORMATION
  Report Type: Report from Study
  Country: US (occurrence: US)
  Receive Date: 20170725
  Receipt Date: 20170725
  Transmission Date: 20171127
  Serious: Yes (Other)
  Sender: FDA-Public Use
  Company Number: US-JAZZ-2016-US-023082

PATIENT
  Sex: Female
  Weight: 95.24 kg

DRUGS (16)
  1. NUVARING [Concomitant]
     Active Substance: ETHINYL ESTRADIOL\ETONOGESTREL
  2. MECLIZINE [Concomitant]
     Active Substance: MECLIZINE HYDROCHLORIDE
  3. CALCIUM + D DUETTO [Concomitant]
  4. PHENTERMINE                        /00131702/ [Concomitant]
  5. NUVIGIL [Concomitant]
     Active Substance: ARMODAFINIL
  6. XANAX [Concomitant]
     Active Substance: ALPRAZOLAM
  7. XYREM [Suspect]
     Active Substance: SODIUM OXYBATE
     Dosage: 4.5 G, BID
     Route: 048
     Dates: start: 201209
  8. XYREM [Suspect]
     Active Substance: SODIUM OXYBATE
     Indication: NARCOLEPSY
     Dosage: 3 G, BID
     Route: 048
     Dates: start: 201110, end: 2011
  9. BIOTIN [Concomitant]
     Active Substance: BIOTIN
  10. MAGNESIUM GLUCONATE [Concomitant]
     Active Substance: MAGNESIUM GLUCONATE
  11. NALTREXONE HCL [Concomitant]
     Active Substance: NALTREXONE HYDROCHLORIDE
  12. RITALIN [Concomitant]
     Active Substance: METHYLPHENIDATE HYDROCHLORIDE
  13. ZINC CHELATE [Concomitant]
  14. PRENATAL VITAMINS                  /02014401/ [Concomitant]
     Active Substance: VITAMINS
  15. XYREM [Suspect]
     Active Substance: SODIUM OXYBATE
     Indication: CATAPLEXY
     Dosage: DOSE ADJUSTMENT
     Route: 048
     Dates: start: 2011, end: 2012
  16. PROVERA [Concomitant]
     Active Substance: MEDROXYPROGESTERONE ACETATE

REACTIONS (5)
  - Haemorrhage [Unknown]
  - Pain [Unknown]
  - Haematoma [Recovering/Resolving]
  - Blood pressure increased [Recovering/Resolving]
  - Exposure during pregnancy [Unknown]
